FAERS Safety Report 25485187 (Version 1)
Quarter: 2025Q2

REPORT INFORMATION
  Report Type: Spontaneous
  Country: FR (occurrence: FR)
  Receive Date: 20250626
  Receipt Date: 20250626
  Transmission Date: 20250717
  Serious: Yes (Hospitalization)
  Sender: MYLAN
  Company Number: None

PATIENT
  Age: 18 Year
  Sex: Male

DRUGS (4)
  1. PREGABALIN [Suspect]
     Active Substance: PREGABALIN
     Indication: Product used for unknown indication
     Dosage: 2100 MILLIGRAM, QD
     Dates: start: 20250507, end: 20250507
  2. PREGABALIN [Suspect]
     Active Substance: PREGABALIN
     Dosage: 2100 MILLIGRAM, QD
     Route: 065
     Dates: start: 20250507, end: 20250507
  3. PREGABALIN [Suspect]
     Active Substance: PREGABALIN
     Dosage: 2100 MILLIGRAM, QD
     Route: 065
     Dates: start: 20250507, end: 20250507
  4. PREGABALIN [Suspect]
     Active Substance: PREGABALIN
     Dosage: 2100 MILLIGRAM, QD
     Dates: start: 20250507, end: 20250507

REACTIONS (2)
  - Drug use disorder [Recovered/Resolved]
  - Depressed level of consciousness [Recovered/Resolved]

NARRATIVE: CASE EVENT DATE: 20250507
